FAERS Safety Report 19785407 (Version 3)
Quarter: 2022Q1

REPORT INFORMATION
  Report Type: Spontaneous
  Country: TR (occurrence: TR)
  Receive Date: 20210903
  Receipt Date: 20220214
  Transmission Date: 20220423
  Serious: Yes (Other)
  Sender: FDA-Public Use
  Company Number: TR-ACCORD-237334

PATIENT
  Age: 74 Year
  Sex: Female
  Weight: 73.5 kg

DRUGS (3)
  1. SERTRALINE [Suspect]
     Active Substance: SERTRALINE HYDROCHLORIDE
     Indication: Major depression
     Dosage: DECREASED GRADUALLY TO 37.5 MG/DAY?ONCE DURING THE MORNING
     Route: 048
  2. METFORMIN [Concomitant]
     Active Substance: METFORMIN HYDROCHLORIDE
     Indication: Diabetes mellitus
  3. MELATONIN [Concomitant]
     Active Substance: MELATONIN
     Indication: Major depression

REACTIONS (2)
  - Carcinoembryonic antigen increased [Recovered/Resolved]
  - Carbohydrate antigen 15-3 increased [Recovered/Resolved]
